FAERS Safety Report 18296865 (Version 1)
Quarter: 2020Q3

REPORT INFORMATION
  Report Type: Report from Study
  Country: BR (occurrence: BR)
  Receive Date: 20200922
  Receipt Date: 20200922
  Transmission Date: 20201103
  Serious: Yes (Hospitalization, Other)
  Sender: FDA-Public Use
  Company Number: BR-JNJFOC-20200925568

PATIENT
  Sex: Male
  Weight: 58 kg

DRUGS (1)
  1. REMICADE [Suspect]
     Active Substance: INFLIXIMAB
     Indication: ANKYLOSING SPONDYLITIS
     Dosage: DRUG START DATE: 10?YEARS AGO (PATIENT INFORMED DURING THE CALL)
     Route: 042
     Dates: start: 20100728

REACTIONS (4)
  - Dengue fever [Unknown]
  - Product dose omission issue [Unknown]
  - Ankylosing spondylitis [Unknown]
  - Infection [Unknown]
